FAERS Safety Report 8695172 (Version 2)
Quarter: 2013Q4

REPORT INFORMATION
  Report Type: Spontaneous
  Country: US (occurrence: US)
  Receive Date: 20120731
  Receipt Date: 20131106
  Transmission Date: 20140711
  Serious: Yes (Disabling, Other)
  Sender: FDA-Public Use
  Company Number: US-009507513-1207USA010614

PATIENT
  Age: 70 Year
  Sex: Male

DRUGS (36)
  1. ZOCOR [Suspect]
     Route: 048
  2. ZETIA [Suspect]
     Route: 048
  3. PROSCAR [Suspect]
  4. PLAVIX [Suspect]
  5. PROZAC [Suspect]
  6. CYCLOSPORINE [Suspect]
  7. LOTRIMIN AF [Suspect]
  8. REGLAN [Suspect]
  9. TOPROL XL TABLETS [Suspect]
  10. TRAMADOL HYDROCHLORIDE [Suspect]
  11. ALPRAZOLAM [Suspect]
  12. METFORMIN [Suspect]
  13. ADVIL [Suspect]
  14. XALATAN [Suspect]
  15. LIPITOR [Suspect]
  16. COREG [Suspect]
  17. LUVOX [Suspect]
  18. OMEGA-3 MARINE TRIGLYCERIDES [Concomitant]
  19. CLOZAPINE [Concomitant]
  20. BILBERRY [Concomitant]
  21. DIAZEPAM [Concomitant]
  22. ARTIFICIAL TEARS (HYPROMELLOSE) [Concomitant]
  23. LUMIGAN [Concomitant]
  24. PILOCARPINE [Concomitant]
  25. TIMOLOL [Concomitant]
  26. PRAVASTATIN SODIUM [Concomitant]
  27. FUROSEMIDE [Concomitant]
  28. POTASSIUM CHLORIDE [Concomitant]
  29. LANTUS [Concomitant]
     Dosage: 12 DF, UNK
  30. ALLOPURINOL [Concomitant]
  31. OXYCODONE [Concomitant]
  32. DIGOXIN [Concomitant]
  33. LOSARTAN POTASSIUM [Concomitant]
  34. ASPIRIN [Concomitant]
  35. FOLIC ACID [Concomitant]
  36. VICODIN [Concomitant]

REACTIONS (14)
  - Blood glucose increased [Unknown]
  - Constipation [Unknown]
  - Asthenia [Unknown]
  - Drug hypersensitivity [Unknown]
  - Abasia [Unknown]
  - Nausea [Unknown]
  - Myalgia [Unknown]
  - Back pain [Unknown]
  - Dyspnoea [Unknown]
  - Arthropathy [Unknown]
  - Sleep disorder [Unknown]
  - Fatigue [Unknown]
  - Vomiting [Unknown]
  - Chest discomfort [Unknown]
